FAERS Safety Report 7531792-0 (Version None)
Quarter: 2011Q2

REPORT INFORMATION
  Report Type: 
  Country: None (occurrence: None)
  Receive Date: 20110601
  Receipt Date: 20110519
  Transmission Date: 20111010
  Serious: Yes (Hospitalization, Other)
  Sender: FDA-Public Use
  Company Number: 1000021202

PATIENT
  Age: 71 Year
  Sex: Male
  Weight: 90 kg

DRUGS (2)
  1. ROFLUMILAST (ROFLUMILAST) (TABLETS) [Suspect]
  2. MARCUMAR [Concomitant]

REACTIONS (3)
  - DYSPNOEA [None]
  - ANAEMIA [None]
  - GASTROINTESTINAL HAEMORRHAGE [None]
